FAERS Safety Report 4416507-7 (Version None)
Quarter: 2004Q2

REPORT INFORMATION
  Report Type: 
  Country: None (occurrence: None)
  Receive Date: 20040630
  Receipt Date: 20040323
  Transmission Date: 20050107
  Serious: Yes (Hospitalization)
  Sender: FDA-Public Use
  Company Number: 04P-163-0249613-00

PATIENT
  Age: 65 Year
  Sex: Female

DRUGS (12)
  1. HUMIRA [Suspect]
     Indication: RHEUMATOID ARTHRITIS
     Dosage: 40 MG, SUBCUTANEOUS
     Route: 058
     Dates: start: 20031001
  2. PROPACET 100 [Concomitant]
  3. AMLODIPINE BESYLATE [Concomitant]
  4. FAMOTIDINE [Concomitant]
  5. CELECOXIB [Concomitant]
  6. CLONIDINE HCL [Concomitant]
  7. LEVOTHYROXINE SODIUM [Concomitant]
  8. LISINOPRIL [Concomitant]
  9. POTASSIUM [Concomitant]
  10. MULTI-VITAMINS [Concomitant]
  11. ZENTRA [Concomitant]
  12. CONJUGATED ESTROGEN [Concomitant]

REACTIONS (1)
  - PNEUMONIA PNEUMOCOCCAL [None]
